FAERS Safety Report 23172918 (Version 1)
Quarter: 2023Q4

REPORT INFORMATION
  Report Type: Spontaneous
  Country: JP (occurrence: JP)
  Receive Date: 20231110
  Receipt Date: 20231110
  Transmission Date: 20240109
  Serious: No
  Sender: FDA-Public Use
  Company Number: JP-WW-2023-04756-LUN

PATIENT
  Age: 70 Year
  Sex: Male

DRUGS (4)
  1. LUNESTA [Suspect]
     Active Substance: ESZOPICLONE
     Route: 048
     Dates: start: 20221005
  2. Telmisartan / Amlodipine  Besilate Combined Drug [Concomitant]
     Dosage: DOSE UNKNOWN
     Route: 048
  3. GLIMEPIRIDE [Concomitant]
     Active Substance: GLIMEPIRIDE
     Dosage: DOSE UNKNOWN
     Route: 065
  4. FLUVASTATIN [Concomitant]
     Active Substance: FLUVASTATIN SODIUM
     Dosage: DOSE UNKNOWN
     Route: 065

REACTIONS (2)
  - Dysgeusia [Unknown]
  - Dysgeusia [Unknown]
